FAERS Safety Report 10029814 (Version 2)
Quarter: 2014Q1

REPORT INFORMATION
  Report Type: Spontaneous
  Country: US (occurrence: US)
  Receive Date: 20140323
  Receipt Date: 20140323
  Transmission Date: 20141002
  Serious: Yes (Other)
  Sender: FDA-Public Use
  Company Number: US-GE HEALTHCARE MEDICAL DIAGNOSTICS-OSCN-PR-0710S-0428

PATIENT
  Age: 16 Year
  Sex: Female

DRUGS (5)
  1. OMNISCAN [Suspect]
     Indication: PRODUCT USED FOR UNKNOWN INDICATION
     Route: 042
     Dates: start: 20020202, end: 20020202
  2. OMNISCAN [Suspect]
     Indication: SPLEEN DISORDER
     Route: 042
     Dates: start: 20020211, end: 20020211
  3. OMNISCAN [Suspect]
     Indication: OSTEOMYELITIS
     Route: 042
     Dates: start: 20040331, end: 20040331
  4. OMNISCAN [Suspect]
     Route: 042
     Dates: start: 20070410, end: 20070410
  5. EPOGEN [Concomitant]

REACTIONS (1)
  - Nephrogenic systemic fibrosis [Not Recovered/Not Resolved]
